FAERS Safety Report 22229369 (Version 2)
Quarter: 2023Q2

REPORT INFORMATION
  Report Type: Spontaneous
  Country: CN (occurrence: CN)
  Receive Date: 20230419
  Receipt Date: 20230428
  Transmission Date: 20230721
  Serious: Yes (Life-Threatening, Hospitalization)
  Sender: FDA-Public Use
  Company Number: CN-ADR-4404021007892202300214

PATIENT

DRUGS (4)
  1. COSELA [Suspect]
     Active Substance: TRILACICLIB DIHYDROCHLORIDE
     Indication: Breast cancer
     Dosage: 300 MG
     Route: 042
     Dates: start: 20230317, end: 20230317
  2. TRODELVY [Suspect]
     Active Substance: SACITUZUMAB GOVITECAN-HZIY
     Indication: Breast cancer
     Dosage: 360MG, ONCE EVERY 14 DAYS
     Route: 042
     Dates: start: 20230317, end: 20230317
  3. SODIUM CHLORIDE [Concomitant]
     Active Substance: SODIUM CHLORIDE
     Indication: Vehicle solution use
     Dosage: 150ML, ONCE EVERY 14 DAYS
     Route: 042
     Dates: start: 20230317, end: 20230317
  4. SODIUM CHLORIDE [Concomitant]
     Active Substance: SODIUM CHLORIDE
     Indication: Vehicle solution use
     Dosage: 500ML, ONCE EVERY 14 DAYS
     Route: 042
     Dates: start: 20230317, end: 20230317

REACTIONS (4)
  - Myelosuppression [Recovering/Resolving]
  - Hypercalcaemia [Recovering/Resolving]
  - Renal injury [Recovering/Resolving]
  - Off label use [Recovering/Resolving]

NARRATIVE: CASE EVENT DATE: 20230317
